FAERS Safety Report 20332003 (Version 2)
Quarter: 2022Q1

REPORT INFORMATION
  Report Type: Spontaneous
  Country: US (occurrence: US)
  Receive Date: 20220113
  Receipt Date: 20220119
  Transmission Date: 20220424
  Serious: No
  Sender: FDA-Public Use
  Company Number: US-MYLANLABS-2021M1093843

PATIENT
  Sex: Female

DRUGS (1)
  1. EMSAM [Suspect]
     Active Substance: SELEGILINE
     Indication: Depression
     Dosage: 6 MILLIGRAM, QD
     Route: 062

REACTIONS (2)
  - Product adhesion issue [Unknown]
  - Product use issue [Unknown]
